FAERS Safety Report 19141173 (Version 1)
Quarter: 2021Q2

REPORT INFORMATION
  Report Type: Other
  Country: US (occurrence: US)
  Receive Date: 20210415
  Receipt Date: 20210415
  Transmission Date: 20210717
  Serious: Yes (Hospitalization, Other)
  Sender: FDA-Public Use
  Company Number: US-ROCHE-2805369

PATIENT
  Age: 60 Year
  Sex: Female

DRUGS (1)
  1. OCREVUS [Suspect]
     Active Substance: OCRELIZUMAB
     Indication: SECONDARY PROGRESSIVE MULTIPLE SCLEROSIS
     Route: 042
     Dates: start: 2018

REACTIONS (12)
  - Nausea [Unknown]
  - Seizure [Unknown]
  - Infusion site pain [Unknown]
  - COVID-19 [Unknown]
  - Flatulence [Unknown]
  - Burning sensation [Recovered/Resolved]
  - Infusion site swelling [Recovering/Resolving]
  - Abdominal pain upper [Unknown]
  - Multiple sclerosis [Unknown]
  - Contusion [Recovering/Resolving]
  - Amnesia [Unknown]
  - Depression [Unknown]

NARRATIVE: CASE EVENT DATE: 202009
